FAERS Safety Report 7430462-7 (Version None)
Quarter: 2011Q2

REPORT INFORMATION
  Report Type: 
  Country: None (occurrence: None)
  Receive Date: 20110421
  Receipt Date: 20110214
  Transmission Date: 20111010
  Serious: No
  Sender: FDA-Public Use
  Company Number: US-ASTRAZENECA-2011SE08508

PATIENT
  Age: 55 Year
  Sex: Female

DRUGS (6)
  1. PRAVASTATIN SODIUM [Suspect]
     Route: 065
  2. AMIODARONE [Concomitant]
     Route: 065
  3. SYNTHROID [Concomitant]
  4. MULTAQ [Suspect]
     Indication: ATRIAL FIBRILLATION
     Route: 048
     Dates: start: 20100901
  5. TOPROL-XL [Suspect]
     Route: 048
  6. COUMADIN [Suspect]
     Route: 065

REACTIONS (4)
  - ARTHRALGIA [None]
  - GAIT DISTURBANCE [None]
  - DYSPNOEA [None]
  - SENSORY DISTURBANCE [None]
